FAERS Safety Report 4926402-2 (Version None)
Quarter: 2006Q1

REPORT INFORMATION
  Report Type: 
  Country: None (occurrence: None)
  Receive Date: 20060228
  Receipt Date: 20051115
  Transmission Date: 20060701
  Serious: No
  Sender: FDA-Public Use
  Company Number: US-GLAXOSMITHKLINE-A0582395A

PATIENT
  Age: 40 Year
  Sex: Female

DRUGS (6)
  1. LAMICTAL [Suspect]
     Indication: BIPOLAR DISORDER
     Dosage: 25MG AT NIGHT
     Route: 048
     Dates: end: 20051114
  2. PROZAC [Concomitant]
  3. KLONOPIN [Concomitant]
  4. SEROQUEL [Concomitant]
     Route: 065
  5. BENTYL [Concomitant]
  6. BIRTH CONTROL PILLS [Concomitant]

REACTIONS (2)
  - INSOMNIA [None]
  - MEMORY IMPAIRMENT [None]
